FAERS Safety Report 8144452-2 (Version None)
Quarter: 2012Q1

REPORT INFORMATION
  Report Type: 
  Country: None (occurrence: None)
  Receive Date: 20120217
  Receipt Date: 20120202
  Transmission Date: 20120608
  Serious: Yes (Hospitalization, Other)
  Sender: FDA-Public Use
  Company Number: US-ROCHE-1039552

PATIENT
  Sex: Female

DRUGS (4)
  1. CARBOPLATIN [Suspect]
     Indication: BREAST CANCER
  2. DOCETAXEL [Suspect]
     Indication: BREAST CANCER
  3. TAMOXIFEN CITRATE [Concomitant]
  4. HERCEPTIN [Suspect]
     Indication: BREAST CANCER
     Dates: start: 20111025

REACTIONS (3)
  - SEPSIS [None]
  - CARDIAC FAILURE [None]
  - RENAL FAILURE [None]
